FAERS Safety Report 7365918-9 (Version None)
Quarter: 2011Q1

REPORT INFORMATION
  Report Type: 
  Country: None (occurrence: None)
  Receive Date: 20110322
  Receipt Date: 20100908
  Transmission Date: 20110831
  Serious: Yes (Hospitalization)
  Sender: FDA-Public Use
  Company Number: US-BAYER-200941019NA

PATIENT
  Sex: Female
  Weight: 150.11 kg

DRUGS (4)
  1. YASMIN [Suspect]
     Indication: PRODUCT USED FOR UNKNOWN INDICATION
     Dosage: UNK
     Dates: start: 20021201
  2. YASMIN [Suspect]
     Dosage: UNK
     Dates: start: 20050101
  3. YASMIN [Suspect]
     Dosage: UNK
     Dates: start: 20060901, end: 20060901
  4. PENICILLIN [Concomitant]
     Indication: SEASONAL ALLERGY

REACTIONS (4)
  - CHOLECYSTITIS ACUTE [None]
  - CHOLELITHIASIS [None]
  - CHOLECYSTITIS CHRONIC [None]
  - PAIN [None]
